FAERS Safety Report 4381808-8 (Version None)
Quarter: 2004Q2

REPORT INFORMATION
  Report Type: 
  Country: None (occurrence: None)
  Receive Date: 20040615
  Receipt Date: 20040603
  Transmission Date: 20050107
  Serious: Yes (Hospitalization)
  Sender: FDA-Public Use
  Company Number: 2004PK00819

PATIENT
  Age: 75 Year
  Sex: Female
  Weight: 55 kg

DRUGS (10)
  1. IRESSA [Suspect]
     Indication: TRANSITIONAL CELL CARCINOMA
     Dosage: 500 MG DAILY PO
     Route: 048
     Dates: start: 20040116
  2. GEMCITABINE [Suspect]
     Indication: TRANSITIONAL CELL CARCINOMA
     Dosage: 2150 MG/M2 ONCE
     Dates: start: 20040126, end: 20040126
  3. CISPLATIN [Suspect]
     Indication: TRANSITIONAL CELL CARCINOMA
     Dosage: 122 MG/M3
     Dates: start: 20040116, end: 20040116
  4. DURAGESIC [Concomitant]
  5. NOVALGIN [Concomitant]
  6. FORTECORTIN [Concomitant]
  7. MOVICOL [Concomitant]
  8. MORPHINE [Concomitant]
  9. METOCLOPRAMIDE HYDROCHLORIDE [Concomitant]
  10. CLEXANE [Concomitant]

REACTIONS (1)
  - THROMBOSIS [None]
